FAERS Safety Report 8090124-2 (Version None)
Quarter: 2012Q1

REPORT INFORMATION
  Report Type: 
  Country: None (occurrence: None)
  Receive Date: 20120129
  Receipt Date: 20111018
  Transmission Date: 20120608
  Serious: No
  Sender: FDA-Public Use
  Company Number: US-ABBOTT-11P-163-0866454-00

PATIENT
  Age: 12 Year
  Sex: Male

DRUGS (20)
  1. HUMIRA [Suspect]
     Indication: CROHN'S DISEASE
     Dates: start: 20110813, end: 20110813
  2. CELEBREX [Concomitant]
     Indication: FIBROMYALGIA
  3. FLEXERIL [Concomitant]
     Indication: MUSCLE SPASMS
  4. ACETAMINOPHEN [Concomitant]
     Indication: PRODUCT USED FOR UNKNOWN INDICATION
  5. HUMIRA [Suspect]
  6. CELEBREX [Concomitant]
     Indication: ARTHRITIS
  7. IMURAN [Concomitant]
     Indication: ARTHRITIS
  8. VITAMIN D [Concomitant]
     Indication: SUPPLEMENTATION THERAPY
  9. FLONASE [Concomitant]
     Indication: ASTHMA
  10. PEPCID [Concomitant]
     Indication: PRODUCT USED FOR UNKNOWN INDICATION
  11. KLONOPIN [Concomitant]
     Indication: ANXIETY
  12. SUDAFED 12 HOUR [Concomitant]
     Indication: PRODUCT USED FOR UNKNOWN INDICATION
  13. ALBUTEROL [Concomitant]
     Indication: ASTHMA
  14. PERIACTIN [Concomitant]
     Indication: MIGRAINE
  15. SYMBICORT [Concomitant]
     Indication: ASTHMA
  16. BENADRYL [Concomitant]
     Indication: PRODUCT USED FOR UNKNOWN INDICATION
  17. HUMIRA [Suspect]
     Dates: start: 20110827, end: 20110827
  18. PENTASA [Concomitant]
     Indication: CROHN'S DISEASE
  19. ZYRTEC [Concomitant]
     Indication: HYPERSENSITIVITY
  20. TRAMADOL HCL [Concomitant]
     Indication: PAIN

REACTIONS (14)
  - BACK PAIN [None]
  - ARTHRALGIA [None]
  - DIARRHOEA [None]
  - ABDOMINAL PAIN [None]
  - INJECTION SITE PRURITUS [None]
  - SINUSITIS [None]
  - NAUSEA [None]
  - VOMITING [None]
  - ABDOMINAL DISTENSION [None]
  - MYALGIA [None]
  - DECREASED APPETITE [None]
  - INJECTION SITE REACTION [None]
  - PYREXIA [None]
  - CLOSTRIDIUM TEST POSITIVE [None]
